FAERS Safety Report 4617216-1 (Version None)
Quarter: 2005Q1

REPORT INFORMATION
  Report Type: 
  Country: None (occurrence: None)
  Receive Date: 20050323
  Receipt Date: 20050314
  Transmission Date: 20050727
  Serious: Yes (Other)
  Sender: FDA-Public Use
  Company Number: PHNU2005DE01381

PATIENT
  Sex: Female

DRUGS (1)
  1. TEGRETOL [Suspect]
     Indication: GRAND MAL CONVULSION
     Dosage: 500 - 800 MG/DAY
     Route: 048
     Dates: start: 19960101

REACTIONS (2)
  - DERMOID CYST OF OVARY [None]
  - OVARIAN OPERATION [None]
